FAERS Safety Report 9750018 (Version 3)
Quarter: 2015Q3

REPORT INFORMATION
  Report Type: Spontaneous
  Country: DE (occurrence: DE)
  Receive Date: 20131212
  Receipt Date: 20150730
  Transmission Date: 20151125
  Serious: No
  Sender: FDA-Public Use
  Company Number: DE-GILEAD-DE-CVT-090555

PATIENT
  Age: 73 Year
  Sex: Female

DRUGS (7)
  1. TORASEMIDE [Concomitant]
     Active Substance: TORSEMIDE
  2. PLAVIX [Concomitant]
     Active Substance: CLOPIDOGREL BISULFATE
  3. DELIX [Concomitant]
     Active Substance: RAMIPRIL
  4. METOPROLOL                         /00376901/ [Concomitant]
  5. SIMVASTATIN. [Concomitant]
     Active Substance: SIMVASTATIN
  6. BELOC ZOK [Concomitant]
     Active Substance: METOPROLOL SUCCINATE
  7. RANEXA [Suspect]
     Active Substance: RANOLAZINE
     Indication: MYOCARDIAL ISCHAEMIA
     Route: 048
     Dates: start: 20090812, end: 20090820

REACTIONS (2)
  - Dizziness [Recovered/Resolved]
  - Nausea [Recovered/Resolved]

NARRATIVE: CASE EVENT DATE: 20090815
